FAERS Safety Report 11244836 (Version 1)
Quarter: 2015Q3

REPORT INFORMATION
  Report Type: Spontaneous
  Country: CA (occurrence: CA)
  Receive Date: 20150707
  Receipt Date: 20150707
  Transmission Date: 20151125
  Serious: Yes (Other)
  Sender: FDA-Public Use
  Company Number: CA-CIPLA LTD.-2015CA05296

PATIENT

DRUGS (2)
  1. CARBOPLATIN. [Suspect]
     Active Substance: CARBOPLATIN
     Indication: SMALL CELL LUNG CANCER
     Dosage: AUC 5 IV ON DAY 1
     Route: 042
  2. ETOSID [Suspect]
     Active Substance: ETOPOSIDE
     Indication: SMALL CELL LUNG CANCER
     Dosage: 100 MG/M2, DAYS 1 TO 3 EVERY 21 DAYS
     Route: 042

REACTIONS (1)
  - Disease progression [Unknown]
